FAERS Safety Report 20802478 (Version 1)
Quarter: 2022Q2

REPORT INFORMATION
  Report Type: Spontaneous
  Country: US (occurrence: None)
  Receive Date: 20220507
  Receipt Date: 20220507
  Transmission Date: 20220721
  Serious: Yes (Hospitalization)
  Sender: FDA-Public Use
  Company Number: None

PATIENT
  Age: 64 Year
  Sex: Male
  Weight: 99 kg

DRUGS (7)
  1. METFORMIN [Suspect]
     Active Substance: METFORMIN HYDROCHLORIDE
     Indication: Glucose tolerance impaired
     Dosage: 180 TABLETS TWICE A DAY ORAL?
     Route: 048
  2. IODINE [Suspect]
     Active Substance: IODINE
     Indication: Contrast media deposition
     Dosage: OTHER QUANTITY : 32 OUNCE(S);?FREQUENCY : ONCE;?
     Route: 048
     Dates: start: 20220404, end: 20220404
  3. AMLODIPINE [Concomitant]
     Active Substance: AMLODIPINE BESYLATE
  4. LOSARTAN [Concomitant]
     Active Substance: LOSARTAN
  5. METFORMIN [Concomitant]
     Active Substance: METFORMIN HYDROCHLORIDE
  6. COENZYME Q10 [Concomitant]
     Active Substance: DIETARY SUPPLEMENT\UBIDECARENONE
  7. DIETARY SUPPLEMENT [Concomitant]
     Active Substance: DIETARY SUPPLEMENT

REACTIONS (6)
  - Dizziness [None]
  - Paraesthesia [None]
  - Blood glucose increased [None]
  - Contraindicated product administered [None]
  - Syncope [None]
  - Contrast media reaction [None]

NARRATIVE: CASE EVENT DATE: 20220404
